FAERS Safety Report 5950230-2 (Version None)
Quarter: 2008Q4

REPORT INFORMATION
  Report Type: 
  Country: None (occurrence: None)
  Receive Date: 20081112
  Receipt Date: 20081030
  Transmission Date: 20090506
  Serious: Yes (Hospitalization)
  Sender: FDA-Public Use
  Company Number: JP-ABBOTT-07P-087-0415174-00

PATIENT
  Age: 76 Year
  Sex: Male

DRUGS (6)
  1. LEUPROLIDE ACETATE [Suspect]
     Indication: PROSTATE CANCER STAGE II
     Route: 058
     Dates: start: 20060721
  2. LEUPROLIDE ACETATE [Suspect]
     Dates: start: 20060623, end: 20060721
  3. LANSOPRAZOLE [Concomitant]
     Indication: REFLUX OESOPHAGITIS
     Route: 048
  4. SODIUM ALGINATE [Concomitant]
     Indication: REFLUX OESOPHAGITIS
     Route: 048
     Dates: start: 20061020
  5. MAGNESIUM OXIDE [Concomitant]
     Indication: COLON CANCER
     Route: 048
  6. AMLODIPINE BESYLATE [Concomitant]
     Indication: HYPERTENSION
     Route: 048
     Dates: end: 20070624

REACTIONS (2)
  - LUNG CANCER METASTATIC [None]
  - NEUROGENIC BLADDER [None]
